FAERS Safety Report 4613275-0 (Version None)
Quarter: 2005Q1

REPORT INFORMATION
  Report Type: 
  Country: None (occurrence: None)
  Receive Date: 20050315
  Receipt Date: 20050301
  Transmission Date: 20050727
  Serious: Yes (Death)
  Sender: FDA-Public Use
  Company Number: FR-2005-003129

PATIENT
  Age: 68 Year
  Sex: Female

DRUGS (5)
  1. FLUDARABINE PHOSPHATE [Suspect]
     Indication: NON-HODGKIN'S LYMPHOMA
     Dosage: 20 MG/M2, CYCLE X 5 D, INTRAVENOUS
     Route: 042
  2. MITOXANTRONE [Suspect]
     Indication: NON-HODGKIN'S LYMPHOMA
     Dosage: 10 MG/M2, 1 DOSE, DAY 1,  INTRAVENOUS
     Route: 042
  3. SULFAMETHOXAZOLE + TRIMETHOPRIM [Concomitant]
  4. PENTAMIDINE (PENTAMIDINE) [Concomitant]
  5. ACYCLOVIR [Concomitant]

REACTIONS (1)
  - DEATH [None]
